FAERS Safety Report 23310636 (Version 1)
Quarter: 2023Q4

REPORT INFORMATION
  Report Type: Spontaneous
  Country: FR (occurrence: FR)
  Receive Date: 20231218
  Receipt Date: 20231218
  Transmission Date: 20240109
  Serious: Yes (Hospitalization, Other)
  Sender: FDA-Public Use
  Company Number: FR-002147023-NVSC2023FR267407

PATIENT
  Age: 68 Year
  Sex: Male

DRUGS (4)
  1. TEGRETOL [Suspect]
     Active Substance: CARBAMAZEPINE
     Indication: Neuralgia
     Dosage: 200 MG, BID
     Route: 048
     Dates: start: 2013
  2. TEGRETOL [Suspect]
     Active Substance: CARBAMAZEPINE
     Dosage: 400 MG, BID
     Route: 048
  3. TEGRETOL [Suspect]
     Active Substance: CARBAMAZEPINE
     Dosage: 400 MG, BID (2 TABLETS TWICE A DAY
     Route: 065
  4. DAFALGAN CODEINE [Concomitant]
     Active Substance: ACETAMINOPHEN\CODEINE PHOSPHATE
     Indication: Neuralgia
     Dosage: 500 MG, (8X/D)
     Route: 065

REACTIONS (10)
  - Delirium [Recovered/Resolved]
  - Cerebrovascular accident [Unknown]
  - Fall [Recovered/Resolved]
  - Myocardial infarction [Unknown]
  - Coma [Unknown]
  - Blood pressure increased [Unknown]
  - Dizziness [Unknown]
  - Constipation [Unknown]
  - Overdose [Unknown]
  - Medication error [Unknown]

NARRATIVE: CASE EVENT DATE: 20230701
